FAERS Safety Report 6158700-1 (Version None)
Quarter: 2009Q2

REPORT INFORMATION
  Report Type: 
  Country: None (occurrence: None)
  Receive Date: 20090417
  Receipt Date: 20090413
  Transmission Date: 20091009
  Serious: Yes (Other)
  Sender: FDA-Public Use
  Company Number: A0778106A

PATIENT
  Sex: Male

DRUGS (3)
  1. WELLBUTRIN [Suspect]
     Indication: DEPRESSION
     Dosage: 150MG PER DAY
     Route: 048
     Dates: start: 20090223, end: 20090309
  2. WELLBUTRIN [Suspect]
     Route: 048
  3. PROVIGIL [Concomitant]

REACTIONS (18)
  - ABNORMAL BEHAVIOUR [None]
  - ADVERSE EVENT [None]
  - AGGRESSION [None]
  - ANXIETY [None]
  - BLOOD PRESSURE INCREASED [None]
  - CONVERSION DISORDER [None]
  - DRUG INEFFECTIVE [None]
  - EMOTIONAL DISORDER [None]
  - FEELING ABNORMAL [None]
  - HEART RATE INCREASED [None]
  - INSOMNIA [None]
  - IRRITABILITY [None]
  - LETHARGY [None]
  - MENTAL IMPAIRMENT [None]
  - OBSESSIVE-COMPULSIVE DISORDER [None]
  - PARANOIA [None]
  - RESTLESSNESS [None]
  - TENSION [None]
